FAERS Safety Report 10028061 (Version 2)
Quarter: 2014Q1

REPORT INFORMATION
  Report Type: Spontaneous
  Country: US (occurrence: US)
  Receive Date: 20140321
  Receipt Date: 20140331
  Transmission Date: 20141002
  Serious: Yes (Hospitalization)
  Sender: FDA-Public Use
  Company Number: US-BAXTER-2014BAX014160

PATIENT
  Age: 65 Year
  Sex: Male

DRUGS (2)
  1. DIANEAL LOW CALCIUM [Suspect]
     Indication: PERITONEAL DIALYSIS
     Route: 033
     Dates: start: 20140120
  2. DIANEAL LOW CALCIUM [Suspect]
     Indication: PERITONEAL DIALYSIS
     Route: 033
     Dates: start: 20140120

REACTIONS (7)
  - Fall [Recovering/Resolving]
  - Balance disorder [Recovering/Resolving]
  - Dysstasia [Recovering/Resolving]
  - International normalised ratio increased [Recovering/Resolving]
  - Haematoma [Recovering/Resolving]
  - Loss of consciousness [Recovering/Resolving]
  - Weight increased [Recovered/Resolved]
